FAERS Safety Report 19110991 (Version 1)
Quarter: 2021Q2

REPORT INFORMATION
  Report Type: Spontaneous
  Country: PL (occurrence: PL)
  Receive Date: 20210409
  Receipt Date: 20210409
  Transmission Date: 20210717
  Serious: Yes (Other)
  Sender: FDA-Public Use
  Company Number: PL-ASTRAZENECA-2021A246488

PATIENT
  Age: 71 Year
  Sex: Female

DRUGS (6)
  1. ALDAN [Concomitant]
  2. GLUCOPHAGE [Concomitant]
     Active Substance: METFORMIN HYDROCHLORIDE
  3. POLFENON 150 MG [Concomitant]
     Dosage: 3X1
  4. TELMISARTAN. [Concomitant]
     Active Substance: TELMISARTAN
  5. MESOPRAL 20 MG HARD ENTERAL CAPSULES [Suspect]
     Active Substance: ESOMEPRAZOLE MAGNESIUM
     Indication: REFLUX GASTRITIS
     Route: 048
  6. ELIQUIS [Concomitant]
     Active Substance: APIXABAN
     Dosage: 2X1

REACTIONS (3)
  - Epidermal necrosis [Recovering/Resolving]
  - Erythema [Recovering/Resolving]
  - Burning sensation [Recovering/Resolving]

NARRATIVE: CASE EVENT DATE: 20210312
